FAERS Safety Report 6299501-3 (Version None)
Quarter: 2009Q3

REPORT INFORMATION
  Report Type: 
  Country: None (occurrence: None)
  Receive Date: 20090806
  Receipt Date: 20090731
  Transmission Date: 20100115
  Serious: Yes (Hospitalization)
  Sender: FDA-Public Use
  Company Number: B0587435A

PATIENT
  Sex: Female
  Weight: 77 kg

DRUGS (4)
  1. LAPATINIB [Suspect]
     Indication: BREAST CANCER
     Dosage: 1250MG PER DAY
     Route: 048
     Dates: start: 20090429, end: 20090729
  2. DOCETAXEL [Suspect]
     Indication: BREAST CANCER
     Dosage: 100MGM2 EVERY 3 WEEKS
     Route: 042
     Dates: start: 20090722, end: 20090722
  3. EPIRUBICIN [Suspect]
     Indication: BREAST CANCER
     Dosage: 90MGM2 EVERY 3 WEEKS
     Route: 042
     Dates: start: 20090429
  4. CYCLOPHOSPHAMIDE [Suspect]
     Indication: BREAST CANCER
     Dosage: 600MGM2 EVERY 3 WEEKS
     Route: 042
     Dates: start: 20090429

REACTIONS (2)
  - BONE PAIN [None]
  - FEBRILE NEUTROPENIA [None]
